FAERS Safety Report 6473103-8 (Version None)
Quarter: 2009Q4

REPORT INFORMATION
  Report Type: 
  Country: None (occurrence: None)
  Receive Date: 20091204
  Receipt Date: 20080506
  Transmission Date: 20100525
  Serious: Yes (Other)
  Sender: FDA-Public Use
  Company Number: GB-ELI_LILLY_AND_COMPANY-GB200805001214

PATIENT
  Age: 52 Year
  Weight: 136 kg

DRUGS (13)
  1. HUMALOG MIX 75/25 [Suspect]
  2. NOVO MIX 30 [Concomitant]
     Indication: TYPE 2 DIABETES MELLITUS
     Dosage: 1 D/F, DAILY (1/D)
     Route: 058
     Dates: start: 20070227, end: 20071120
  3. ALLOPURINOL [Concomitant]
  4. ASPIRIN [Concomitant]
  5. CANDESARTAN CILEXETIL [Concomitant]
  6. DIAZEPAM [Concomitant]
  7. FLUOXETINE [Concomitant]
  8. GLICLAZIDE [Concomitant]
  9. LANSOPRAZOLE [Concomitant]
  10. MELOXICAM [Concomitant]
  11. METFORMIN HCL [Concomitant]
  12. SILDENAFIL [Concomitant]
  13. SIMVASTATIN [Concomitant]

REACTIONS (2)
  - INJECTION SITE ERYTHEMA [None]
  - INJECTION SITE URTICARIA [None]
